FAERS Safety Report 7525345-8 (Version None)
Quarter: 2011Q2

REPORT INFORMATION
  Report Type: 
  Country: None (occurrence: None)
  Receive Date: 20110602
  Receipt Date: 20110602
  Transmission Date: 20111010
  Serious: Yes (Other)
  Sender: FDA-Public Use
  Company Number: None

PATIENT
  Sex: Female
  Weight: 131.5431 kg

DRUGS (2)
  1. TRIAZ BENZOYL PEROXIDE CLOTHS 3%  MEDICIS [Suspect]
     Indication: ACNE
     Dosage: WASH WITH ONE CLOTH DAILY TOP
     Route: 061
     Dates: start: 20101028, end: 20101114
  2. TRIAZ BENZOYL PEROXIDE CLOTHS 3%  MEDICIS [Suspect]
     Indication: ACNE
     Dosage: WASH WITH ONE CLOTH DAILY TOP
     Route: 061
     Dates: start: 20110529, end: 20110530

REACTIONS (2)
  - VULVOVAGINAL DISCOMFORT [None]
  - VAGINITIS BACTERIAL [None]
